FAERS Safety Report 9871091 (Version 1)
Quarter: 2014Q1

REPORT INFORMATION
  Report Type: Spontaneous
  Country: US (occurrence: US)
  Receive Date: 20140205
  Receipt Date: 20140205
  Transmission Date: 20141002
  Serious: Yes (Hospitalization)
  Sender: FDA-Public Use
  Company Number: US-GILEAD-2013-0073128

PATIENT
  Sex: Female

DRUGS (1)
  1. STRIBILD [Suspect]
     Indication: HIV INFECTION

REACTIONS (1)
  - Renal failure [Unknown]
